FAERS Safety Report 12134004 (Version 1)
Quarter: 2016Q1

REPORT INFORMATION
  Report Type: Spontaneous
  Country: GB (occurrence: GB)
  Receive Date: 20160301
  Receipt Date: 20160301
  Transmission Date: 20160526
  Serious: Yes (Other)
  Sender: FDA-Public Use
  Company Number: GB-DEXPHARM-20160200

PATIENT
  Age: 62 Year
  Sex: Male
  Weight: 76 kg

DRUGS (6)
  1. RANITIDINE [Concomitant]
     Active Substance: RANITIDINE\RANITIDINE HYDROCHLORIDE
     Dosage: DAILY DOSE: 2 DF DOSAGE FORM EVERY DAYS
     Dates: start: 20150925
  2. FINASTERIDE. [Concomitant]
     Active Substance: FINASTERIDE
     Dosage: DAILY DOSE: 1 DF DOSAGE FORM EVERY DAYS
     Dates: start: 20150925
  3. TAMSULOSIN HYDROCHLORIDE. [Concomitant]
     Active Substance: TAMSULOSIN HYDROCHLORIDE
     Dosage: DAILY DOSE: 1 DF DOSAGE FORM EVERY DAYS
     Dates: start: 20150925
  4. OMEPRAZOLE. [Suspect]
     Active Substance: OMEPRAZOLE
     Indication: GASTROOESOPHAGEAL REFLUX DISEASE
  5. SOLARAZE [Concomitant]
     Active Substance: DICLOFENAC SODIUM
     Dosage: APPLY
     Dates: start: 20151130, end: 20151214
  6. LANSOPRAZOLE. [Suspect]
     Active Substance: LANSOPRAZOLE
     Indication: GASTROOESOPHAGEAL REFLUX DISEASE

REACTIONS (1)
  - Acute kidney injury [Recovering/Resolving]
